FAERS Safety Report 8795664 (Version 2)
Quarter: 2012Q4

REPORT INFORMATION
  Report Type: 
  Country: CH (occurrence: CH)
  Receive Date: 20120919
  Receipt Date: 20121022
  Transmission Date: 20130627
  Serious: Yes (Hospitalization)
  Sender: FDA-Public Use
  Company Number: CH-BAUSCH-BL-2012-000895

PATIENT
  Age: 6 Year
  Sex: Male
  Weight: 20 kg

DRUGS (1)
  1. TETRACAINE HYDROCHLORIDE [Suspect]
     Indication: EYE MUSCLE OPERATION
     Route: 047
     Dates: start: 20120430, end: 20120430

REACTIONS (1)
  - Hypersensitivity [Recovered/Resolved]
